FAERS Safety Report 23888876 (Version 2)
Quarter: 2024Q2

REPORT INFORMATION
  Report Type: Report from Study
  Country: EG (occurrence: EG)
  Receive Date: 20240523
  Receipt Date: 20240529
  Transmission Date: 20240716
  Serious: Yes (Other)
  Sender: FDA-Public Use
  Company Number: EG-002147023-NVSC2024EG107941

PATIENT
  Age: 34 Year
  Sex: Female

DRUGS (1)
  1. MAYZENT [Suspect]
     Active Substance: SIPONIMOD
     Indication: Multiple sclerosis
     Dosage: 2 MG
     Route: 048
     Dates: start: 20240401

REACTIONS (2)
  - Dyspnoea [Unknown]
  - Bone pain [Unknown]

NARRATIVE: CASE EVENT DATE: 20240401
